FAERS Safety Report 5697774-9 (Version None)
Quarter: 2008Q2

REPORT INFORMATION
  Report Type: 
  Country: None (occurrence: None)
  Receive Date: 20080408
  Receipt Date: 20080403
  Transmission Date: 20081010
  Serious: Yes (Other)
  Sender: FDA-Public Use
  Company Number: US-ASTRAZENECA-2006UW27454

PATIENT
  Age: 18682 Day
  Sex: Male
  Weight: 100 kg

DRUGS (2)
  1. SEROQUEL [Suspect]
     Indication: ANXIETY
     Route: 048
     Dates: start: 19981015
  2. SEROQUEL [Suspect]
     Indication: DEPRESSION
     Route: 048
     Dates: start: 19981015

REACTIONS (4)
  - DIABETES MELLITUS [None]
  - EYE OPERATION COMPLICATION [None]
  - FIBROMYALGIA [None]
  - NEUROPATHY PERIPHERAL [None]
